FAERS Safety Report 20882619 (Version 1)
Quarter: 2022Q2

REPORT INFORMATION
  Report Type: Spontaneous
  Country: CN (occurrence: None)
  Receive Date: 20220527
  Receipt Date: 20220527
  Transmission Date: 20220720
  Serious: Yes (Hospitalization)
  Sender: FDA-Public Use
  Company Number: 2022A194197

PATIENT
  Age: 24812 Day
  Sex: Female

DRUGS (2)
  1. BRILINTA [Suspect]
     Active Substance: TICAGRELOR
     Indication: Anti-platelet antibody
     Route: 048
     Dates: start: 20210501, end: 20220423
  2. INDOBUFEN [Suspect]
     Active Substance: INDOBUFEN
     Indication: Anti-platelet antibody
     Route: 048
     Dates: start: 20210501, end: 20220423

REACTIONS (2)
  - Haemorrhagic erosive gastritis [Recovering/Resolving]
  - Large intestine polyp [Unknown]

NARRATIVE: CASE EVENT DATE: 20220423
